FAERS Safety Report 6773547-0 (Version None)
Quarter: 2010Q2

REPORT INFORMATION
  Report Type: 
  Country: None (occurrence: None)
  Receive Date: 20100616
  Receipt Date: 20100609
  Transmission Date: 20101027
  Serious: Yes (Death, Hospitalization, Other)
  Sender: FDA-Public Use
  Company Number: US-AMGEN-QUU392292

PATIENT
  Sex: Female

DRUGS (6)
  1. NPLATE [Suspect]
     Indication: IDIOPATHIC THROMBOCYTOPENIC PURPURA
     Route: 058
     Dates: start: 20090119
  2. CORTICOSTEROIDS [Concomitant]
     Dates: start: 19870401
  3. IMMU-G [Concomitant]
     Route: 042
     Dates: start: 20081203
  4. SYNTHROID [Concomitant]
     Route: 048
  5. NIFEDIPINE [Concomitant]
     Route: 048
  6. EXJADE [Concomitant]
     Route: 042

REACTIONS (12)
  - BACTERIAL SEPSIS [None]
  - CARDIAC ARREST [None]
  - CELLULITIS [None]
  - METABOLIC ACIDOSIS [None]
  - OEDEMA PERIPHERAL [None]
  - PANCYTOPENIA [None]
  - PNEUMONIA [None]
  - PNEUMONIA STREPTOCOCCAL [None]
  - RENAL FAILURE ACUTE [None]
  - RESPIRATORY FAILURE [None]
  - SEPTIC SHOCK [None]
  - VENTRICULAR ARRHYTHMIA [None]
